FAERS Safety Report 6900236-1 (Version None)
Quarter: 2010Q3

REPORT INFORMATION
  Report Type: 
  Country: None (occurrence: None)
  Receive Date: 20100803
  Receipt Date: 20100729
  Transmission Date: 20110219
  Serious: Yes (Other)
  Sender: FDA-Public Use
  Company Number: US-ROCHE-717452

PATIENT
  Sex: Female
  Weight: 72.6 kg

DRUGS (2)
  1. ACTEMRA [Suspect]
     Indication: RHEUMATOID ARTHRITIS
     Dosage: 2 TREATMENTS OF 4 MG/KG
     Route: 042
  2. ACTEMRA [Suspect]
     Dosage: LAST 3 TREATMENTS.
     Route: 042

REACTIONS (2)
  - HYPERTENSION [None]
  - SUPRAVENTRICULAR TACHYCARDIA [None]
